FAERS Safety Report 16348616 (Version 2)
Quarter: 2019Q2

REPORT INFORMATION
  Report Type: Spontaneous
  Country: GB (occurrence: GB)
  Receive Date: 20190523
  Receipt Date: 20190611
  Transmission Date: 20190711
  Serious: Yes (Death, Hospitalization)
  Sender: FDA-Public Use
  Company Number: GB-EMD SERONO-E2B_90068061

PATIENT
  Age: 48 Year
  Sex: Male
  Weight: 66 kg

DRUGS (7)
  1. CLADRIBINE. [Suspect]
     Active Substance: CLADRIBINE
     Dosage: SECOND WEEK THERAPY
     Route: 048
     Dates: start: 20180628
  2. ASPIRIN                            /00002701/ [Concomitant]
     Active Substance: ASPIRIN
     Indication: PRODUCT USED FOR UNKNOWN INDICATION
  3. DARIFENACIN. [Concomitant]
     Active Substance: DARIFENACIN
     Indication: PRODUCT USED FOR UNKNOWN INDICATION
  4. AMANTADINE. [Concomitant]
     Active Substance: AMANTADINE HYDROCHLORIDE
     Indication: PRODUCT USED FOR UNKNOWN INDICATION
  5. AMITRIPTYLINE [Concomitant]
     Active Substance: AMITRIPTYLINE
     Indication: PRODUCT USED FOR UNKNOWN INDICATION
  6. DULOXETINE. [Concomitant]
     Active Substance: DULOXETINE
     Indication: PRODUCT USED FOR UNKNOWN INDICATION
  7. CLADRIBINE. [Suspect]
     Active Substance: CLADRIBINE
     Indication: RELAPSING-REMITTING MULTIPLE SCLEROSIS
     Dosage: FIRST WEEK THERAPY
     Route: 048
     Dates: start: 20180501

REACTIONS (12)
  - Transient ischaemic attack [Fatal]
  - Endocarditis bacterial [Fatal]
  - Respiratory failure [Fatal]
  - Pneumonia [Fatal]
  - Lung infiltration [Fatal]
  - Dyspnoea [Fatal]
  - Tachypnoea [Fatal]
  - Pallor [Fatal]
  - Septic embolus [Fatal]
  - Tachycardia [Fatal]
  - Peripheral artery thrombosis [Fatal]
  - Blood lactic acid increased [Fatal]

NARRATIVE: CASE EVENT DATE: 201902
